FAERS Safety Report 17457392 (Version 1)
Quarter: 2020Q1

REPORT INFORMATION
  Report Type: Report from Study
  Country: None (occurrence: BR)
  Receive Date: 20200225
  Receipt Date: 20200225
  Transmission Date: 20200409
  Serious: Yes (Disabling, Other)
  Sender: FDA-Public Use
  Company Number: BR-ABBVIE-19K-020-2731840-00

PATIENT
  Sex: Female
  Weight: 105 kg

DRUGS (11)
  1. HUMIRA [Suspect]
     Active Substance: ADALIMUMAB
     Route: 058
  2. PROFENID [Concomitant]
     Active Substance: KETOPROFEN
     Indication: PAIN
     Dates: start: 20200118, end: 20200217
  3. HUMIRA [Suspect]
     Active Substance: ADALIMUMAB
     Indication: RHEUMATOID ARTHRITIS
     Route: 058
     Dates: start: 20180120
  4. PROFENID [Concomitant]
     Active Substance: KETOPROFEN
     Indication: TENDONITIS
  5. HUMIRA [Suspect]
     Active Substance: ADALIMUMAB
     Route: 058
  6. OMEPRAZOLE. [Concomitant]
     Active Substance: OMEPRAZOLE
     Indication: GASTROINTESTINAL DISORDER
     Dosage: 20 MG
     Dates: start: 20200118, end: 20200217
  7. METHOTREXATE. [Concomitant]
     Active Substance: METHOTREXATE
     Indication: FIBROMYALGIA
     Dosage: THREE IN THE MORNING AND THREE IN THE AFTERNOON
     Dates: start: 2017
  8. CLONAZEPAM. [Concomitant]
     Active Substance: CLONAZEPAM
     Indication: SLEEP DISORDER THERAPY
  9. HUMIRA [Suspect]
     Active Substance: ADALIMUMAB
     Route: 058
  10. DIAZEPAM. [Concomitant]
     Active Substance: DIAZEPAM
     Indication: SLEEP DISORDER
  11. CORTISONE [Suspect]
     Active Substance: CORTISONE
     Indication: PRODUCT USED FOR UNKNOWN INDICATION
     Route: 065

REACTIONS (13)
  - Monoparesis [Unknown]
  - Gastric disorder [Unknown]
  - Pain in extremity [Not Recovered/Not Resolved]
  - Pain [Recovering/Resolving]
  - Loss of personal independence in daily activities [Unknown]
  - Peripheral swelling [Not Recovered/Not Resolved]
  - Fall [Not Recovered/Not Resolved]
  - Localised infection [Not Recovered/Not Resolved]
  - Tendon rupture [Not Recovered/Not Resolved]
  - Ligament rupture [Unknown]
  - Arthralgia [Unknown]
  - Weight increased [Unknown]
  - Tendonitis [Unknown]

NARRATIVE: CASE EVENT DATE: 2019
